FAERS Safety Report 9387717 (Version 4)
Quarter: 2013Q4

REPORT INFORMATION
  Report Type: Spontaneous
  Country: US (occurrence: US)
  Receive Date: 20130708
  Receipt Date: 20131112
  Transmission Date: 20140711
  Serious: Yes (Other)
  Sender: FDA-Public Use
  Company Number: US-VIROPHARMA INCORPORATED-20130626CINRY4499

PATIENT
  Age: 40 Year
  Sex: Female
  Weight: 100.33 kg

DRUGS (11)
  1. CINRYZE (C1 ESTERASE INHIBITOR (HUMAN)) [Suspect]
     Indication: HEREDITARY ANGIOEDEMA
     Dates: start: 201110
  2. CINRYZE (C1 ESTERASE INHIBITOR (HUMAN)) [Suspect]
     Indication: PROPHYLAXIS
  3. FIRAZYR [Suspect]
     Indication: HEREDITARY ANGIOEDEMA
     Dosage: UNKNOWN
     Dates: start: 201303, end: 20130701
  4. ALPRAZOLAM [Concomitant]
     Indication: ANXIETY
     Route: 048
  5. CLARITIN [Concomitant]
     Indication: NASOPHARYNGITIS
     Dosage: UNKNOWN
     Route: 048
  6. FLEXERIL [Concomitant]
     Indication: MUSCLE SPASMS
     Dosage: UNKNOWN
     Route: 048
  7. HYDROCODONE-ACETAMINOPHEN [Concomitant]
     Indication: PAIN
     Dosage: 10-325MG
     Route: 048
  8. POTASSIUM CHLORIDE CR [Concomitant]
     Indication: PRODUCT USED FOR UNKNOWN INDICATION
     Route: 048
  9. OMEPRAZOLE CPDR [Concomitant]
     Indication: GASTROOESOPHAGEAL REFLUX DISEASE
     Route: 048
  10. FLECAINIDE ACETATE [Concomitant]
     Indication: MUSCLE SPASMS
     Route: 048
  11. MELOXICAM [Concomitant]
     Indication: PRODUCT USED FOR UNKNOWN INDICATION
     Route: 048

REACTIONS (2)
  - Cardiomyopathy [Not Recovered/Not Resolved]
  - Hereditary angioedema [Recovering/Resolving]
